FAERS Safety Report 9537761 (Version 1)
Quarter: 2013Q3

REPORT INFORMATION
  Report Type: Spontaneous
  Country: IT (occurrence: IT)
  Receive Date: 20130919
  Receipt Date: 20130919
  Transmission Date: 20140515
  Serious: Yes (Hospitalization)
  Sender: FDA-Public Use
  Company Number: IT-ASTRAZENECA-2013SE68633

PATIENT
  Age: 30312 Day
  Sex: Male

DRUGS (9)
  1. BRILIQUE [Suspect]
     Indication: ANGIOPLASTY
     Route: 048
     Dates: start: 20130810, end: 20130826
  2. CARDIOAPIRIN (ASA) [Suspect]
  3. ASCRIPTIN [Suspect]
     Indication: MYOCARDIAL ISCHAEMIA
     Route: 048
     Dates: start: 20120401, end: 20130826
  4. LEVOFLOXACIN [Concomitant]
  5. AMIODAR [Concomitant]
  6. KANRENOL [Concomitant]
  7. CARDICOR [Concomitant]
  8. LASIX [Concomitant]
  9. APROVEL [Concomitant]

REACTIONS (5)
  - Erosive duodenitis [Recovered/Resolved]
  - Asthenia [Recovered/Resolved]
  - Gastrointestinal haemorrhage [Recovered/Resolved]
  - Haematemesis [Recovered/Resolved]
  - Melaena [Recovered/Resolved]
